FAERS Safety Report 7233465-0 (Version None)
Quarter: 2011Q1

REPORT INFORMATION
  Report Type: 
  Country: None (occurrence: None)
  Receive Date: 20110119
  Receipt Date: 20110114
  Transmission Date: 20110831
  Serious: Yes (Death)
  Sender: FDA-Public Use
  Company Number: IT-CELGENEUS-083-50794-10122208

PATIENT
  Sex: Male

DRUGS (1)
  1. VIDAZA [Suspect]
     Route: 065
     Dates: start: 20080715, end: 20090519

REACTIONS (3)
  - NO THERAPEUTIC RESPONSE [None]
  - SEPTIC SHOCK [None]
  - PYREXIA [None]
